FAERS Safety Report 17810006 (Version 2)
Quarter: 2020Q2

REPORT INFORMATION
  Report Type: Report from Study
  Country: BE (occurrence: BE)
  Receive Date: 20200521
  Receipt Date: 20200529
  Transmission Date: 20200714
  Serious: Yes (Other)
  Sender: FDA-Public Use
  Company Number: BE-EMD SERONO-9153273

PATIENT
  Sex: Female

DRUGS (2)
  1. REBIF [Suspect]
     Active Substance: INTERFERON BETA-1A
     Route: 058
     Dates: start: 20200511
  2. REBIF [Suspect]
     Active Substance: INTERFERON BETA-1A
     Indication: MULTIPLE SCLEROSIS
     Route: 058
     Dates: start: 20200206, end: 20200326

REACTIONS (14)
  - Pain [Unknown]
  - Influenza [Unknown]
  - Dizziness [Unknown]
  - Fatigue [Not Recovered/Not Resolved]
  - Ill-defined disorder [Unknown]
  - Headache [Unknown]
  - Insomnia [Unknown]
  - Epilepsy [Not Recovered/Not Resolved]
  - Myalgia [Unknown]
  - Fall [Unknown]
  - Adverse drug reaction [Unknown]
  - Anxiety [Unknown]
  - Thermal burn [Unknown]
  - Fear [Unknown]

NARRATIVE: CASE EVENT DATE: 2020
